FAERS Safety Report 9925366 (Version 2)
Quarter: 2014Q1

REPORT INFORMATION
  Report Type: Spontaneous
  Country: NO (occurrence: NO)
  Receive Date: 20140226
  Receipt Date: 20140226
  Transmission Date: 20141002
  Serious: Yes (Other)
  Sender: FDA-Public Use
  Company Number: NO-PFIZER INC-2014053494

PATIENT
  Sex: 0

DRUGS (1)
  1. NEURONTIN [Suspect]
     Indication: FACIAL NEURALGIA

REACTIONS (5)
  - Multi-organ failure [Unknown]
  - Encephalitis [Unknown]
  - Visual acuity reduced [Not Recovered/Not Resolved]
  - Amnesia [Unknown]
  - Asthenia [Unknown]
